FAERS Safety Report 20791654 (Version 4)
Quarter: 2022Q2

REPORT INFORMATION
  Report Type: Spontaneous
  Country: PL (occurrence: PL)
  Receive Date: 20220505
  Receipt Date: 20220525
  Transmission Date: 20220721
  Serious: Yes (Hospitalization, Other)
  Sender: FDA-Public Use
  Company Number: PL-BAUSCH-BL-2022-011122

PATIENT
  Age: 31 Year
  Sex: Male

DRUGS (17)
  1. DICLOFENAC SODIUM [Suspect]
     Active Substance: DICLOFENAC SODIUM
     Indication: Back pain
     Route: 065
  2. DICLOFENAC SODIUM [Suspect]
     Active Substance: DICLOFENAC SODIUM
     Indication: Sacral pain
  3. RAMIPRIL [Suspect]
     Active Substance: RAMIPRIL
     Indication: Hypertension
     Route: 065
  4. SERTRALINE HYDROCHLORIDE [Suspect]
     Active Substance: SERTRALINE HYDROCHLORIDE
     Indication: Anxiety
     Dosage: IN THE MORNING
     Route: 065
  5. SERTRALINE HYDROCHLORIDE [Suspect]
     Active Substance: SERTRALINE HYDROCHLORIDE
     Indication: Affective disorder
  6. SERTRALINE HYDROCHLORIDE [Suspect]
     Active Substance: SERTRALINE HYDROCHLORIDE
     Indication: Insomnia
  7. SERTRALINE HYDROCHLORIDE [Suspect]
     Active Substance: SERTRALINE HYDROCHLORIDE
     Indication: Depression
  8. ALPRAZOLAM [Suspect]
     Active Substance: ALPRAZOLAM
     Indication: Insomnia
     Dosage: AT NIGHT
     Route: 065
  9. ALPRAZOLAM [Suspect]
     Active Substance: ALPRAZOLAM
     Indication: Affective disorder
  10. ALPRAZOLAM [Suspect]
     Active Substance: ALPRAZOLAM
     Indication: Anxiety
  11. TADALAFIL [Suspect]
     Active Substance: TADALAFIL
     Indication: Erectile dysfunction
     Dosage: AS NEEDED
     Route: 065
  12. ATORVASTATIN CALCIUM [Suspect]
     Active Substance: ATORVASTATIN CALCIUM
     Indication: Dyslipidaemia
     Route: 065
  13. KETOPROFEN [Suspect]
     Active Substance: KETOPROFEN
     Indication: Analgesic therapy
     Route: 042
  14. ACETAMINOPHEN\TRAMADOL HYDROCHLORIDE [Suspect]
     Active Substance: ACETAMINOPHEN\TRAMADOL HYDROCHLORIDE
     Indication: Back pain
     Dosage: 37.5 / 325 MG TWICE
     Route: 065
  15. MORPHINE [Suspect]
     Active Substance: MORPHINE
     Indication: Analgesic therapy
     Route: 042
  16. FUROSEMIDE [Concomitant]
     Active Substance: FUROSEMIDE
     Indication: Cardiac disorder
  17. METOPROLOL [Concomitant]
     Active Substance: METOPROLOL
     Indication: Cardiac disorder

REACTIONS (18)
  - Anorgasmia [Recovered/Resolved]
  - Drug level increased [Unknown]
  - Drug interaction [Recovered/Resolved]
  - Tachypnoea [Recovering/Resolving]
  - Back pain [Recovered/Resolved]
  - Hyperaesthesia [Recovered/Resolved]
  - Back pain [Recovered/Resolved]
  - Erectile dysfunction [Recovered/Resolved]
  - Tachycardia [Recovering/Resolving]
  - Blood pressure increased [Recovering/Resolving]
  - Condition aggravated [Recovered/Resolved]
  - Affective disorder [Recovering/Resolving]
  - Sacral pain [Recovered/Resolved]
  - Neuralgia [Recovered/Resolved]
  - Insomnia [Recovering/Resolving]
  - Depression [Unknown]
  - Drug ineffective [Unknown]
  - Product use in unapproved indication [Unknown]
